FAERS Safety Report 9616830 (Version 1)
Quarter: 2013Q4

REPORT INFORMATION
  Report Type: Other
  Country: KR (occurrence: KR)
  Receive Date: 20131011
  Receipt Date: 20131011
  Transmission Date: 20140711
  Serious: Yes (Other)
  Sender: FDA-Public Use
  Company Number: KR-PURDUE-USA-2013-0107235

PATIENT
  Age: 75 Year
  Sex: Female

DRUGS (9)
  1. OXYCODONE HYDROCHLORIDE (SIMILAR TO NDA 22-272) [Suspect]
     Indication: PAIN
     Dosage: 10 MG, UNK
     Route: 048
  2. PREGABALIN [Interacting]
     Indication: PROCEDURAL PAIN
     Dosage: 150 MG, UNK
     Route: 065
  3. FENTANYL [Concomitant]
     Indication: ANALGESIC THERAPY
     Route: 042
  4. KETOROLAC [Concomitant]
     Indication: ANALGESIC THERAPY
     Route: 042
  5. RAMOSETRON [Concomitant]
     Indication: ANALGESIC THERAPY
     Route: 042
  6. CELECOXIB [Concomitant]
     Indication: PRODUCT USED FOR UNKNOWN INDICATION
     Dosage: 400 MG, UNK
     Route: 065
  7. PROPOFOL [Concomitant]
     Indication: ANAESTHESIA
  8. ROCURONIUM [Concomitant]
     Indication: ANAESTHESIA
  9. DESFLURANE [Concomitant]
     Indication: ANAESTHESIA
     Route: 055

REACTIONS (2)
  - Serotonin syndrome [Recovered/Resolved]
  - Drug interaction [Recovered/Resolved]
